FAERS Safety Report 11374623 (Version 10)
Quarter: 2016Q1

REPORT INFORMATION
  Report Type: Report from Study
  Country: US (occurrence: US)
  Receive Date: 20150813
  Receipt Date: 20160114
  Transmission Date: 20160525
  Serious: Yes (Other)
  Sender: FDA-Public Use
  Company Number: US-AMGEN-USASL2015081245

PATIENT
  Age: 21 Year
  Sex: Female

DRUGS (2)
  1. ENBREL [Suspect]
     Active Substance: ETANERCEPT
     Dosage: UNK
     Route: 065
  2. ENBREL [Suspect]
     Active Substance: ETANERCEPT
     Indication: ANKYLOSING SPONDYLITIS
     Dosage: 50 MG, QWK
     Route: 065
     Dates: start: 20150713

REACTIONS (29)
  - Abasia [Unknown]
  - Pain [Unknown]
  - Back pain [Unknown]
  - Injection site haemorrhage [Unknown]
  - Hypoaesthesia [Unknown]
  - Somnolence [Unknown]
  - Renal pain [Unknown]
  - Muscular weakness [Unknown]
  - Pain in extremity [Unknown]
  - Oropharyngeal pain [Unknown]
  - Localised infection [Unknown]
  - Condition aggravated [Unknown]
  - Skin discolouration [Unknown]
  - Urinary tract infection [Unknown]
  - Malaise [Unknown]
  - Anxiety [Unknown]
  - Feeling abnormal [Unknown]
  - Sleep disorder [Unknown]
  - Injection site pain [Unknown]
  - Injection site reaction [Recovered/Resolved]
  - Fatigue [Unknown]
  - Peripheral coldness [Unknown]
  - Musculoskeletal disorder [Unknown]
  - Tooth disorder [Unknown]
  - Erythema [Unknown]
  - Cystitis [Unknown]
  - Sneezing [Unknown]
  - Paraesthesia [Unknown]
  - Injection site erythema [Recovered/Resolved]

NARRATIVE: CASE EVENT DATE: 2015
